FAERS Safety Report 7378818-5 (Version None)
Quarter: 2011Q1

REPORT INFORMATION
  Report Type: 
  Country: None (occurrence: None)
  Receive Date: 20110328
  Receipt Date: 20110314
  Transmission Date: 20110831
  Serious: Yes (Hospitalization, Other)
  Sender: FDA-Public Use
  Company Number: PHHY2011IT20427

PATIENT
  Sex: Female

DRUGS (5)
  1. VOLTAREN [Suspect]
     Indication: BACK PAIN
     Dosage: 75 MG/3 ML, ONE POSOLOGICAL UNIT
     Route: 030
     Dates: start: 20110129, end: 20110212
  2. HIZAAR [Concomitant]
  3. MUSCORIL [Concomitant]
     Indication: BACK PAIN
     Dosage: 4 MG/ML, ONE POSOLOGICAL UNIT
     Route: 030
     Dates: start: 20110129, end: 20110212
  4. TORADOL [Interacting]
     Indication: BACK PAIN
     Dosage: 10 MG, TWO POSOLOGICAL UNITS
     Route: 048
     Dates: start: 20110129, end: 20110212
  5. CARVIPRESS [Interacting]

REACTIONS (7)
  - GASTRIC ULCER HAEMORRHAGE [None]
  - DUODENAL ULCER HAEMORRHAGE [None]
  - BLOOD PRESSURE INCREASED [None]
  - HIATUS HERNIA [None]
  - DRUG INTERACTION [None]
  - THROMBOSIS [None]
  - ANAEMIA [None]
